FAERS Safety Report 8589763-1 (Version None)
Quarter: 2012Q3

REPORT INFORMATION
  Report Type: 
  Country: None (occurrence: None)
  Receive Date: 20120813
  Receipt Date: 20120726
  Transmission Date: 20120928
  Serious: Yes (Life-Threatening)
  Sender: FDA-Public Use
  Company Number: CN-ASTRAZENECA-2012SE55436

PATIENT
  Sex: Male
  Weight: 50 kg

DRUGS (3)
  1. PULMICORT [Suspect]
     Indication: MUSCLE SPASMS
     Route: 055
     Dates: start: 20090727, end: 20090727
  2. ATROVENT [Concomitant]
  3. BRICANYL [Concomitant]
     Indication: MUSCLE SPASMS
     Route: 055
     Dates: start: 20090727, end: 20090727

REACTIONS (1)
  - ASTHMA [None]
